FAERS Safety Report 8127837-X (Version None)
Quarter: 2012Q1

REPORT INFORMATION
  Report Type: 
  Country: None (occurrence: None)
  Receive Date: 20120210
  Receipt Date: 20110728
  Transmission Date: 20120608
  Serious: No
  Sender: FDA-Public Use
  Company Number: US-GLAXOSMITHKLINE-A0938806A

PATIENT
  Age: 38 Year
  Sex: Female

DRUGS (5)
  1. PAROXETINE [Suspect]
     Indication: DEPRESSION
     Dosage: 10MG PER DAY
     Route: 048
     Dates: start: 20020101, end: 20110601
  2. CLARITIN [Concomitant]
  3. PAXIL [Suspect]
     Indication: DEPRESSION
     Dosage: 10MG PER DAY
     Route: 048
     Dates: start: 20110601
  4. SYNTHROID [Concomitant]
  5. NEXIUM [Concomitant]

REACTIONS (7)
  - ABDOMINAL PAIN UPPER [None]
  - WITHDRAWAL SYNDROME [None]
  - HEADACHE [None]
  - DISTURBANCE IN ATTENTION [None]
  - ANXIETY [None]
  - DIZZINESS [None]
  - DRUG INEFFECTIVE [None]
